FAERS Safety Report 8967990 (Version 1)
Quarter: 2012Q4

REPORT INFORMATION
  Report Type: 
  Country: CH (occurrence: CH)
  Receive Date: 20121218
  Receipt Date: 20121218
  Transmission Date: 20130627
  Serious: Yes (Other)
  Sender: FDA-Public Use
  Company Number: CH-PFIZER INC-2012309925

PATIENT
  Age: 23 Year
  Sex: Female

DRUGS (19)
  1. CISPLATIN [Suspect]
     Dosage: 20 mg/m2, UNK
     Route: 065
     Dates: start: 20120919
  2. VELBE [Suspect]
     Dosage: 1.6 mg/m2, UNK
     Route: 065
     Dates: start: 20120919
  3. ZELBORAF [Suspect]
     Indication: MALIGNANT MELANOMA OF SKIN
     Dosage: 960 mg, 2x/day
     Route: 065
     Dates: start: 201202, end: 201207
  4. DACIN [Suspect]
     Dosage: 800 mg/m2, UNK
     Route: 065
     Dates: start: 20120919
  5. ARIXTRA [Concomitant]
     Dosage: 2.5 mg, 1x/day
     Route: 065
  6. DEXAMETHASONE [Concomitant]
     Dosage: 8 mg, 1x/day
     Route: 065
  7. NEXIUM [Concomitant]
     Dosage: 20 mg, 1x/day
     Route: 065
  8. IRFEN [Concomitant]
     Dosage: 800 mg, 2x/day
     Route: 065
  9. TEMESTA [Concomitant]
     Dosage: 1 mg, 2x/day
     Route: 065
  10. LYRICA [Concomitant]
     Dosage: 100 mg, 2x/day
     Route: 065
  11. MYCOSTATINE [Concomitant]
     Dosage: 1 ml, 4x/day
     Route: 065
  12. XANAX [Concomitant]
     Dosage: 1 mg, 3x/day
     Route: 065
  13. TRANSTEC TTS [Concomitant]
     Dosage: 70 ug, 1 in 3 D
     Route: 065
  14. BUSCOPAN [Concomitant]
     Dosage: 10 mg, 3x/day
     Route: 065
  15. TEMGESIC [Concomitant]
     Dosage: 2 mg (0.4 mg,5 in 1 D)
     Route: 065
  16. PASPERTIN [Concomitant]
     Dosage: 10 mg, 4x/day
     Route: 065
  17. DAFALGAN [Concomitant]
     Dosage: 1 g, 3x/day
     Route: 065
  18. IMIGRAN [Concomitant]
     Dosage: 50 mg, 2x/day
     Route: 065
  19. IMOVANE [Concomitant]
     Dosage: 3.75 mg, 1x/day
     Route: 065

REACTIONS (5)
  - Pain in extremity [Not Recovered/Not Resolved]
  - Musculoskeletal chest pain [Not Recovered/Not Resolved]
  - Neck pain [Not Recovered/Not Resolved]
  - Arthralgia [Not Recovered/Not Resolved]
  - Musculoskeletal pain [Not Recovered/Not Resolved]
